FAERS Safety Report 6107891-7 (Version None)
Quarter: 2009Q1

REPORT INFORMATION
  Report Type: 
  Country: None (occurrence: None)
  Receive Date: 20090309
  Receipt Date: 20090227
  Transmission Date: 20090719
  Serious: Yes (Hospitalization)
  Sender: FDA-Public Use
  Company Number: JP-MERCK-0903USA00671

PATIENT
  Age: 49 Year
  Sex: Female

DRUGS (3)
  1. PEPCID [Suspect]
     Route: 042
     Dates: start: 20090226
  2. OZEX [Suspect]
     Route: 048
  3. GAMOFA [Concomitant]
     Route: 065

REACTIONS (1)
  - RHABDOMYOLYSIS [None]
